FAERS Safety Report 5792388-4 (Version None)
Quarter: 2008Q2

REPORT INFORMATION
  Report Type: 
  Country: None (occurrence: None)
  Receive Date: 20080623
  Receipt Date: 20080527
  Transmission Date: 20081010
  Serious: Yes (Hospitalization)
  Sender: FDA-Public Use
  Company Number: GXKR2008IT05510

PATIENT
  Age: 27 Year
  Sex: Female

DRUGS (1)
  1. CEFTRIAXONE [Suspect]
     Dosage: , VIA FALSA

REACTIONS (1)
  - SYNCOPE VASOVAGAL [None]
